FAERS Safety Report 8664936 (Version 2)
Quarter: 2014Q1

REPORT INFORMATION
  Report Type: Not Available
  Country: FR (occurrence: FR)
  Receive Date: 20120713
  Receipt Date: 20140303
  Transmission Date: 20141002
  Serious: Yes (Hospitalization)
  Sender: FDA-Public Use
  Company Number: FR-RB-042211-12

PATIENT
  Sex: Male

DRUGS (2)
  1. SUBUTEX [Suspect]
     Indication: PRODUCT USED FOR UNKNOWN INDICATION
     Dosage: 15-20 MG DAILY
     Route: 042
     Dates: start: 2002
  2. COCAINE [Concomitant]
     Indication: PRODUCT USED FOR UNKNOWN INDICATION
     Dosage: DOSING DETAILS UNKNOWN
     Route: 065

REACTIONS (7)
  - Vasculitis [Recovering/Resolving]
  - Lymphoedema [Recovering/Resolving]
  - Skin wound [Recovering/Resolving]
  - Intentional drug misuse [Unknown]
  - Inappropriate schedule of drug administration [Unknown]
  - Extra dose administered [Unknown]
  - Drug abuse [Unknown]
